FAERS Safety Report 8069552 (Version 3)
Quarter: 2014Q1

REPORT INFORMATION
  Report Type: Report from Study
  Country: ES (occurrence: ES)
  Receive Date: 20110804
  Receipt Date: 20140320
  Transmission Date: 20141002
  Serious: Yes (Death, Disabling, Other)
  Sender: FDA-Public Use
  Company Number: ES-UCBSA-037814

PATIENT
  Age: 72 Year
  Sex: Male
  Weight: 73 kg

DRUGS (15)
  1. NEUPRO [Suspect]
     Indication: PARKINSON^S DISEASE
     Dates: start: 20100408, end: 20100415
  2. NEUPRO [Suspect]
     Indication: PARKINSON^S DISEASE
     Dates: start: 20100416, end: 20100429
  3. NEUPRO [Suspect]
     Indication: PARKINSON^S DISEASE
     Dates: start: 20100430, end: 20100507
  4. NEUPRO [Suspect]
     Indication: PARKINSON^S DISEASE
     Dates: start: 20100508, end: 20100510
  5. RANITIDINA [Concomitant]
     Indication: GASTRITIS PROPHYLAXIS
     Dates: start: 20100408, end: 20110329
  6. PARACETAMOL [Concomitant]
     Indication: PAIN PROPHYLAXIS
     Dates: start: 20100827, end: 20110329
  7. ZOLPIDEM [Concomitant]
     Indication: INSOMNIA
     Dates: start: 20101021, end: 20110329
  8. MIRTAZAPINE [Concomitant]
     Indication: INSOMNIA
     Dates: start: 20110214, end: 20110329
  9. SINEMET PLUS RETARD 100 [Concomitant]
     Indication: PARKINSON^S DISEASE
     Dosage: 1 OTHER 100/25 MG
     Dates: start: 2008, end: 20110329
  10. SINEMET PLUS [Concomitant]
     Indication: PARKINSON^S DISEASE
     Dosage: I OTHER 150/37.5 MG
     Dates: start: 20100702, end: 20100812
  11. SINEMET PLUS [Concomitant]
     Indication: PARKINSON^S DISEASE
     Dosage: 1 OTHER 150/37.5 MG
     Dates: start: 20100914, end: 20101021
  12. SINEMET [Concomitant]
     Indication: PARKINSON^S DISEASE
     Dosage: 1 OTHER 250/25MG
     Dates: start: 2005, end: 20100701
  13. SINEMET [Concomitant]
     Indication: PARKINSON^S DISEASE
     Dosage: 1 OTHER 185.5/18.75
     Dates: start: 20101022, end: 20110329
  14. MIDAZOLAM [Concomitant]
     Indication: PALLIATIVE CARE
     Dates: start: 20100314, end: 20110329
  15. MORPHINE [Concomitant]
     Indication: PALLIATIVE CARE
     Dates: start: 20100314, end: 20110329

REACTIONS (1)
  - Oesophageal adenocarcinoma metastatic [Fatal]
